FAERS Safety Report 25889666 (Version 1)
Quarter: 2025Q4

REPORT INFORMATION
  Report Type: Spontaneous
  Country: US (occurrence: None)
  Receive Date: 20251006
  Receipt Date: 20251006
  Transmission Date: 20260118
  Serious: Yes (Hospitalization)
  Sender: FDA-CTU
  Company Number: None

PATIENT
  Sex: Male

DRUGS (11)
  1. ABIRATERONE ACETATE [Suspect]
     Active Substance: ABIRATERONE ACETATE
     Indication: Prostate cancer
     Dosage: TAKE 4 TABLETS BY MOUTH DAILY, TAKE 1 HOUR BEFORE EATING QR 2 HQUES AFTER EATING
     Route: 048
     Dates: start: 20250225
  2. ABIRATERONE ACETATE [Concomitant]
     Active Substance: ABIRATERONE ACETATE
  3. CRESTOR  TAB 20MG [Concomitant]
  4. FLOMAX   CAP 0.4MG [Concomitant]
  5. FLONASE ALGY SPR 50MCG [Concomitant]
  6. LEUPROLIDE POW  ACETATE [Concomitant]
  7. NIZORAL  SHA 1% [Concomitant]
  8. PREDNISONE [Concomitant]
     Active Substance: PREDNISONE
  9. TRIAMCINOLON OIN 0.1% [Concomitant]
  10. VENTOLIN HFA [Concomitant]
     Active Substance: ALBUTEROL SULFATE
  11. VOLTAREN  GEL 1% [Concomitant]

REACTIONS (2)
  - Hospitalisation [None]
  - Therapy interrupted [None]
